FAERS Safety Report 8999034 (Version 1)
Quarter: 2013Q1

REPORT INFORMATION
  Report Type: Report from Study
  Country: US (occurrence: US)
  Receive Date: 20130103
  Receipt Date: 20130103
  Transmission Date: 20140127
  Serious: Yes (Hospitalization)
  Sender: FDA-Public Use
  Company Number: PHHO2010US19325

PATIENT
  Age: 45 Year
  Sex: Female
  Weight: 89.9 kg

DRUGS (7)
  1. PLACEBO [Suspect]
     Indication: OSTEOARTHRITIS
     Dates: start: 20101206
  2. PLACEBO [Suspect]
  3. PLACEBO [Suspect]
  4. NAPROXEN [Concomitant]
     Indication: OSTEOARTHRITIS
     Dates: start: 20101206, end: 20101215
  5. NAPROXEN [Concomitant]
     Dates: start: 20101220
  6. FLEXERIL [Concomitant]
     Indication: FIBROMYALGIA
     Dosage: 10 MG, QD
     Dates: start: 200905
  7. MULTIVITAMINS [Concomitant]
     Indication: SUPPLEMENTATION THERAPY
     Dosage: 1 DF (TAB), QD
     Dates: start: 2006

REACTIONS (1)
  - Diverticulitis [Recovered/Resolved]
